FAERS Safety Report 16579688 (Version 4)
Quarter: 2019Q3

REPORT INFORMATION
  Report Type: Spontaneous
  Country: NL (occurrence: NL)
  Receive Date: 20190716
  Receipt Date: 20190822
  Transmission Date: 20191004
  Serious: No
  Sender: FDA-Public Use
  Company Number: NL-JNJFOC-20190708597

PATIENT
  Age: 70 Year
  Sex: Female

DRUGS (6)
  1. BOTULINUM TOXIN [Suspect]
     Active Substance: BOTULINUM TOXIN NOS
     Indication: PRODUCT USED FOR UNKNOWN INDICATION
     Route: 065
  2. VALPROIC ACID. [Suspect]
     Active Substance: VALPROIC ACID
     Indication: PRODUCT USED FOR UNKNOWN INDICATION
     Route: 065
  3. TOPIRAMATE. [Suspect]
     Active Substance: TOPIRAMATE
     Indication: MIGRAINE
     Dosage: UNK
     Route: 065
  4. CANDESARTAN. [Suspect]
     Active Substance: CANDESARTAN
     Indication: PRODUCT USED FOR UNKNOWN INDICATION
     Route: 065
  5. PROPRANOLOL [Suspect]
     Active Substance: PROPRANOLOL HYDROCHLORIDE
     Indication: HYPERTENSION
     Dosage: STILL USES 40 MG DAILY
     Route: 065
  6. CLOMIPRAMINE [Suspect]
     Active Substance: CLOMIPRAMINE
     Indication: PROPHYLAXIS
     Route: 065

REACTIONS (8)
  - Fear [Unknown]
  - Drug ineffective [Unknown]
  - Sluggishness [Unknown]
  - Fatigue [Unknown]
  - Adverse event [Unknown]
  - Exercise tolerance decreased [Unknown]
  - Weight increased [Unknown]
  - Insomnia [Unknown]
